FAERS Safety Report 16229811 (Version 1)
Quarter: 2019Q2

REPORT INFORMATION
  Report Type: Report from Study
  Country: DE (occurrence: DE)
  Receive Date: 20190423
  Receipt Date: 20190423
  Transmission Date: 20190711
  Serious: Yes (Other)
  Sender: FDA-Public Use
  Company Number: DE-PFIZER INC-2019166124

PATIENT
  Age: 75 Year
  Sex: Female

DRUGS (3)
  1. BENEPALI [Suspect]
     Active Substance: ETANERCEPT
     Indication: RHEUMATOID ARTHRITIS
     Dosage: UNKNOWN
     Route: 065
  2. NO SUBJECT DRUG [Suspect]
     Active Substance: UNSPECIFIED INGREDIENT
     Dosage: NO DOSE GIVEN
  3. METHOTREXATE SODIUM. [Suspect]
     Active Substance: METHOTREXATE SODIUM
     Dosage: UNKNOWN
     Route: 065

REACTIONS (2)
  - Influenza like illness [Recovered/Resolved]
  - Lumbar vertebral fracture [Not Recovered/Not Resolved]

NARRATIVE: CASE EVENT DATE: 20180615
